FAERS Safety Report 26163864 (Version 1)
Quarter: 2025Q4

REPORT INFORMATION
  Report Type: Spontaneous
  Country: US (occurrence: US)
  Receive Date: 20251216
  Receipt Date: 20251216
  Transmission Date: 20260119
  Serious: Yes (Other)
  Sender: BLUEPRINT MEDICINES
  Company Number: US-Blueprint Medicines Corporation-2025-AER-02681

PATIENT
  Age: 55 Year
  Sex: Female

DRUGS (1)
  1. AYVAKIT [Suspect]
     Active Substance: AVAPRITINIB
     Indication: Malignant mast cell neoplasm
     Route: 065

REACTIONS (11)
  - Osteonecrosis [Unknown]
  - Compression fracture [Unknown]
  - Adrenal insufficiency [Unknown]
  - Coronary artery disease [Unknown]
  - Tryptase increased [Unknown]
  - Anaemia [Unknown]
  - Hepatic enzyme increased [Unknown]
  - Pain [Unknown]
  - Bone pain [Unknown]
  - Osteoporosis [Unknown]
  - Activities of daily living decreased [Unknown]
